FAERS Safety Report 8948094 (Version 1)
Quarter: 2012Q4

REPORT INFORMATION
  Report Type: Spontaneous
  Country: FR (occurrence: None)
  Receive Date: 20121127
  Receipt Date: 20121127
  Transmission Date: 20130627
  Serious: Yes (Death, Life-Threatening, Hospitalization)
  Sender: FDA-Public Use
  Company Number: LTI2012A00213

PATIENT
  Age: 48 Year
  Sex: Male

DRUGS (19)
  1. OGASTORO [Suspect]
     Route: 048
     Dates: start: 20120716, end: 20120730
  2. COLIMYCINE [Suspect]
     Dates: start: 20120709, end: 20120731
  3. LASILIX [Suspect]
     Route: 042
     Dates: start: 20120703, end: 20120709
  4. LASILIX [Suspect]
     Route: 042
     Dates: start: 20120721, end: 20120724
  5. LASILIX [Suspect]
     Route: 042
     Dates: start: 20120727, end: 20120731
  6. HEPARIN (HEPARIN) [Suspect]
     Route: 042
     Dates: start: 20120701, end: 20120707
  7. HEPARIN (HEPARIN) [Suspect]
     Route: 042
     Dates: start: 20120721, end: 20120725
  8. HEPARIN (HEPARIN) [Suspect]
     Route: 042
     Dates: start: 20120727
  9. MERONEM [Suspect]
     Route: 042
     Dates: start: 20120710, end: 20120716
  10. MERONEM [Suspect]
     Route: 042
     Dates: start: 20120726, end: 20120803
  11. FLAGYL [Suspect]
     Dates: start: 20120626, end: 20120702
  12. FLAGYL [Suspect]
     Dates: start: 20120728
  13. IBUPROFEN (IBUPROFEN) [Concomitant]
  14. CANCIDAS (CASPOFUNGIN ACETATE) [Concomitant]
  15. AXEPIM (CEFEPIME HYDROCHLORIDE) [Concomitant]
  16. VANCOMYCIN (VANCOMYCIN) [Concomitant]
  17. AMIKACIN (AMIKACIN) [Concomitant]
  18. PIVALONE (TIXOCORTOL PIVALATE) [Concomitant]
  19. PARACETAMOL (PARACETAMOL) [Concomitant]

REACTIONS (2)
  - Drug reaction with eosinophilia and systemic symptoms [None]
  - Pancytopenia [None]
